FAERS Safety Report 5318797-5 (Version None)
Quarter: 2007Q2

REPORT INFORMATION
  Report Type: 
  Country: None (occurrence: None)
  Receive Date: 20070503
  Receipt Date: 20070423
  Transmission Date: 20071010
  Serious: Yes (Hospitalization)
  Sender: FDA-Public Use
  Company Number: 20070116 /

PATIENT
  Age: 22 Year
  Sex: Female

DRUGS (1)
  1. VENOFER [Suspect]
     Dosage: 300 MG INTRAVENOUS DRIP
     Route: 041
     Dates: start: 20070321

REACTIONS (3)
  - ABDOMINAL PAIN UPPER [None]
  - PAIN IN EXTREMITY [None]
  - SKIN DISCOLOURATION [None]
